FAERS Safety Report 6610208-2 (Version None)
Quarter: 2010Q1

REPORT INFORMATION
  Report Type: 
  Country: None (occurrence: None)
  Receive Date: 20100302
  Receipt Date: 20100218
  Transmission Date: 20100710
  Serious: Yes (Death)
  Sender: FDA-Public Use
  Company Number: US-WYE-H13726410

PATIENT
  Age: 21 Year
  Sex: Female

DRUGS (5)
  1. IBUPROFEN [Suspect]
     Dosage: UNKNOWN
     Route: 048
     Dates: start: 20080101, end: 20080101
  2. DEXTROPROPOXYPHENE [Suspect]
     Dosage: UNKNOWN
     Route: 065
  3. TRAMADOL HCL [Suspect]
     Dosage: UNKNOWN
     Route: 065
  4. ACETAMINOPHEN [Suspect]
     Dosage: UNKNOWN
     Route: 065
  5. DIPHENHYDRAMINE HCL [Suspect]
     Dosage: UNKNOWN
     Route: 065

REACTIONS (1)
  - COMPLETED SUICIDE [None]
